FAERS Safety Report 7443566-X (Version None)
Quarter: 2011Q2

REPORT INFORMATION
  Report Type: 
  Country: None (occurrence: None)
  Receive Date: 20110419
  Receipt Date: 20110406
  Transmission Date: 20111010
  Serious: Yes (Hospitalization)
  Sender: FDA-Public Use
  Company Number: 2011MA003759

PATIENT
  Age: 44 Year
  Sex: Male

DRUGS (1)
  1. NAPROXEN [Suspect]
     Indication: JOINT INJURY
     Dosage: 250 MG; Q8H; PO
     Route: 048
     Dates: start: 20110323, end: 20110324

REACTIONS (2)
  - ARTHRALGIA [None]
  - JOINT LOCK [None]
